FAERS Safety Report 6070821-0 (Version None)
Quarter: 2009Q1

REPORT INFORMATION
  Report Type: 
  Country: None (occurrence: None)
  Receive Date: 20090209
  Receipt Date: 20080805
  Transmission Date: 20090719
  Serious: No
  Sender: FDA-Public Use
  Company Number: A0741138A

PATIENT
  Age: 24 Year
  Sex: Female

DRUGS (2)
  1. PAXIL [Suspect]
     Dosage: 30MG PER DAY
     Route: 048
     Dates: start: 20060101, end: 20080801
  2. LEVOTHYROXINE SODIUM [Concomitant]

REACTIONS (8)
  - ANXIETY [None]
  - CRYING [None]
  - DIPLOPIA [None]
  - MALAISE [None]
  - PARAESTHESIA [None]
  - TREMOR [None]
  - VISION BLURRED [None]
  - WITHDRAWAL SYNDROME [None]
